FAERS Safety Report 21533587 (Version 2)
Quarter: 2022Q4

REPORT INFORMATION
  Report Type: Spontaneous
  Country: IT (occurrence: IT)
  Receive Date: 20221101
  Receipt Date: 20221219
  Transmission Date: 20230112
  Serious: Yes (Hospitalization)
  Sender: FDA-Public Use
  Company Number: None

PATIENT
  Age: 48 Year
  Sex: Female
  Weight: 57 kg

DRUGS (1)
  1. FILGRASTIM [Suspect]
     Active Substance: FILGRASTIM
     Indication: Neutropenia
     Dosage: 30 MIU, DAILY (30MUI /DIE)
     Route: 058
     Dates: start: 20220920, end: 20220922

REACTIONS (4)
  - Chest pain [Recovered/Resolved]
  - Hypertensive crisis [Recovered/Resolved]
  - Pain [Recovered/Resolved]
  - Drug ineffective [Recovered/Resolved]

NARRATIVE: CASE EVENT DATE: 20220920
